FAERS Safety Report 8974239 (Version 1)
Quarter: 2012Q4

REPORT INFORMATION
  Report Type: Spontaneous
  Country: US (occurrence: None)
  Receive Date: 20121211
  Receipt Date: 20121211
  Transmission Date: 20130627
  Serious: Yes (Other)
  Sender: FDA-Public Use
  Company Number: 2012SUN00310

PATIENT
  Age: 13 Year
  Sex: Female

DRUGS (3)
  1. GEMCITABINE [Suspect]
     Indication: EWING^S SARCOMA
     Dosage: 900 MG/M2 OVER 1 HOUR, UNKNOWN
  2. DOCETAXEL [Suspect]
     Indication: EWING^S SARCOMA
     Dosage: 100 MG/M2 OVER 1 HOUR, UNKNOWN
  3. BEVACIZUMAB [Suspect]
     Indication: EWING^S SARCOMA
     Dosage: 5 MG/KG OVER 90 MINUTES, UNKNOWN

REACTIONS (4)
  - Epistaxis [None]
  - Disease progression [None]
  - Bone marrow failure [None]
  - Ewing^s sarcoma [None]
